FAERS Safety Report 23912545 (Version 1)
Quarter: 2024Q2

REPORT INFORMATION
  Report Type: Spontaneous
  Country: US (occurrence: US)
  Receive Date: 20240528
  Receipt Date: 20240528
  Transmission Date: 20240716
  Serious: No
  Sender: FDA-Public Use
  Company Number: US-AMGEN-USASP2024102952

PATIENT
  Age: 58 Year
  Sex: Female

DRUGS (1)
  1. REPATHA [Suspect]
     Active Substance: EVOLOCUMAB
     Indication: Low density lipoprotein abnormal
     Dosage: 140 MILLIGRAM, UNK
     Route: 058
     Dates: start: 202301

REACTIONS (4)
  - Abdominal pain upper [Recovered/Resolved]
  - Injection site pain [Not Recovered/Not Resolved]
  - Therapy interrupted [Unknown]
  - Influenza like illness [Not Recovered/Not Resolved]

NARRATIVE: CASE EVENT DATE: 20240516
